FAERS Safety Report 6298629-1 (Version None)
Quarter: 2009Q3

REPORT INFORMATION
  Report Type: 
  Country: None (occurrence: None)
  Receive Date: 20090804
  Receipt Date: 20090720
  Transmission Date: 20100115
  Serious: No
  Sender: FDA-Public Use
  Company Number: SPI200900233

PATIENT
  Age: 60 Year
  Sex: Female

DRUGS (1)
  1. AMITIZA [Suspect]
     Indication: DRUG USE FOR UNKNOWN INDICATION
     Dosage: 24 MCG, BID
     Dates: start: 20090714, end: 20090701

REACTIONS (8)
  - ANXIETY [None]
  - ARTHRALGIA [None]
  - ASTHENIA [None]
  - CHEST DISCOMFORT [None]
  - DRUG INEFFECTIVE [None]
  - HEADACHE [None]
  - MUSCLE TIGHTNESS [None]
  - PAIN IN EXTREMITY [None]
